FAERS Safety Report 17666555 (Version 2)
Quarter: 2021Q2

REPORT INFORMATION
  Report Type: Spontaneous
  Country: US (occurrence: US)
  Receive Date: 20200414
  Receipt Date: 20210412
  Transmission Date: 20210716
  Serious: No
  Sender: FDA-Public Use
  Company Number: US-CORCEPT THERAPEUTICS INC.-US-2019CRT001075

PATIENT
  Age: 70 Year
  Sex: Male
  Weight: 97.51 kg

DRUGS (2)
  1. KORLYM [Suspect]
     Active Substance: MIFEPRISTONE
     Indication: CUSHING^S SYNDROME
     Dosage: 300 MG, 1 TAB Q 3 DAYS
     Route: 048
     Dates: start: 20191127, end: 202001
  2. KORLYM [Suspect]
     Active Substance: MIFEPRISTONE
     Dosage: 600 MG, QD
     Route: 048
     Dates: start: 202001

REACTIONS (9)
  - Blood glucose increased [Recovering/Resolving]
  - Gastric disorder [Unknown]
  - Vomiting [Recovering/Resolving]
  - Incorrect dose administered [Recovered/Resolved]
  - Neuralgia [Not Recovered/Not Resolved]
  - Blood pressure increased [Recovering/Resolving]
  - Drug ineffective [Unknown]
  - Suspected COVID-19 [Recovered/Resolved]
  - Nausea [Recovering/Resolving]

NARRATIVE: CASE EVENT DATE: 2019
